FAERS Safety Report 23972797 (Version 1)
Quarter: 2024Q2

REPORT INFORMATION
  Report Type: Spontaneous
  Country: CA (occurrence: CA)
  Receive Date: 20240613
  Receipt Date: 20240613
  Transmission Date: 20240716
  Serious: Yes (Other)
  Sender: FDA-Public Use
  Company Number: CA-INCYTE CORPORATION-2024IN004958

PATIENT

DRUGS (3)
  1. PEMAZYRE [Suspect]
     Active Substance: PEMIGATINIB
     Indication: Glioblastoma multiforme
     Dosage: 13.5 MILLIGRAM, QD EVERY 14 DAYS BASED ON CYCLE
     Route: 048
  2. PEMAZYRE [Suspect]
     Active Substance: PEMIGATINIB
     Dosage: 13.5 MILLIGRAM, 14 DAYS ON AND 7DAYS OFF
     Route: 048
     Dates: start: 20240510
  3. PEMAZYRE [Suspect]
     Active Substance: PEMIGATINIB
     Dosage: 13.5 MILLIGRAM, QD, 21 DAYS ON AND 7 DAYS OFF
     Route: 048
     Dates: start: 20240510

REACTIONS (6)
  - Glioblastoma multiforme [Unknown]
  - Fine motor skill dysfunction [Unknown]
  - Gastrointestinal disorder [Unknown]
  - Increased need for sleep [Unknown]
  - Disease progression [Unknown]
  - Off label use [Unknown]

NARRATIVE: CASE EVENT DATE: 20240510
